FAERS Safety Report 13252105 (Version 1)
Quarter: 2017Q1

REPORT INFORMATION
  Report Type: Spontaneous
  Country: US (occurrence: US)
  Receive Date: 20170220
  Receipt Date: 20170220
  Transmission Date: 20170428
  Serious: No
  Sender: FDA-Public Use
  Company Number: US-GLAXOSMITHKLINE-US2017023051

PATIENT
  Age: 65 Year
  Sex: Male

DRUGS (21)
  1. PENTOXIFYLLINE. [Concomitant]
     Active Substance: PENTOXIFYLLINE
  2. CLONAZEPAM. [Concomitant]
     Active Substance: CLONAZEPAM
  3. MUCOMYST [Concomitant]
     Active Substance: ACETYLCYSTEINE
  4. OXYCODONE [Concomitant]
     Active Substance: OXYCODONE
  5. PROVENTIL [Concomitant]
     Active Substance: ALBUTEROL
  6. HYDROCHLOROTHIAZIDE + LOSARTAN [Concomitant]
     Active Substance: HYDROCHLOROTHIAZIDE\LOSARTAN
  7. AMLODIPINE [Concomitant]
     Active Substance: AMLODIPINE BESYLATE
  8. MORPHINE [Concomitant]
     Active Substance: MORPHINE
  9. NITROGLYCERIN SUBLINGUAL SPRAY [Concomitant]
  10. BREO ELLIPTA [Suspect]
     Active Substance: FLUTICASONE FUROATE\VILANTEROL TRIFENATATE
     Indication: CHRONIC OBSTRUCTIVE PULMONARY DISEASE
     Dosage: 1 PUFF(S), QD
     Route: 055
     Dates: start: 20170112, end: 20170216
  11. ASPIRIN. [Concomitant]
     Active Substance: ASPIRIN
  12. GLUCOTROL [Concomitant]
     Active Substance: GLIPIZIDE
  13. INVOKANA [Concomitant]
     Active Substance: CANAGLIFLOZIN
  14. LOSARTAN. [Concomitant]
     Active Substance: LOSARTAN
  15. CARVEDILOL. [Concomitant]
     Active Substance: CARVEDILOL
  16. ISOSORBIDE. [Concomitant]
     Active Substance: ISOSORBIDE
  17. ACCOLATE [Concomitant]
     Active Substance: ZAFIRLUKAST
  18. PLAVIX [Concomitant]
     Active Substance: CLOPIDOGREL BISULFATE
  19. ROPINIROLE. [Concomitant]
     Active Substance: ROPINIROLE
  20. BREO ELLIPTA [Suspect]
     Active Substance: FLUTICASONE FUROATE\VILANTEROL TRIFENATATE
     Indication: ASTHMA
  21. DUONEB [Concomitant]
     Active Substance: ALBUTEROL SULFATE\IPRATROPIUM BROMIDE

REACTIONS (3)
  - Product use issue [Unknown]
  - Dyspnoea [Recovered/Resolved]
  - Vasospasm [Unknown]

NARRATIVE: CASE EVENT DATE: 201701
